FAERS Safety Report 7151142-1 (Version None)
Quarter: 2010Q4

REPORT INFORMATION
  Report Type: 
  Country: None (occurrence: None)
  Receive Date: 20101210
  Receipt Date: 20101130
  Transmission Date: 20110411
  Serious: Yes (Hospitalization)
  Sender: FDA-Public Use
  Company Number: US-ACTELION-A-US2010-41446

PATIENT

DRUGS (3)
  1. TRACLEER [Suspect]
     Indication: PULMONARY ARTERIAL HYPERTENSION
     Dosage: UNK MG, UNK
     Route: 048
     Dates: start: 20081219
  2. ASPIRIN [Suspect]
     Dosage: UNK
     Route: 048
     Dates: end: 20101001
  3. REVATIO [Concomitant]

REACTIONS (5)
  - COLON POLYPECTOMY [None]
  - COLONIC POLYP [None]
  - COLONOSCOPY [None]
  - HYPERTENSION [None]
  - LARGE INTESTINAL HAEMORRHAGE [None]
